FAERS Safety Report 21215492 (Version 1)
Quarter: 2022Q3

REPORT INFORMATION
  Report Type: Spontaneous
  Country: US (occurrence: None)
  Receive Date: 20220815
  Receipt Date: 20220815
  Transmission Date: 20221027
  Serious: Yes (Hospitalization)
  Sender: FDA-Public Use
  Company Number: None

PATIENT
  Sex: Female

DRUGS (1)
  1. KISQALI FEMARA CO-PACK [Suspect]
     Active Substance: LETROZOLE\RIBOCICLIB
     Indication: Breast cancer female
     Dosage: OTHER QUANTITY : 600/2.5 MG;?FREQUENCY : AS DIRECTED;?
     Route: 048
     Dates: start: 202205

REACTIONS (3)
  - Tremor [None]
  - Fatigue [None]
  - Asthenia [None]
